FAERS Safety Report 10967781 (Version 1)
Quarter: 2015Q1

REPORT INFORMATION
  Report Type: Spontaneous
  Country: US (occurrence: None)
  Receive Date: 20150226
  Receipt Date: 20150226
  Transmission Date: 20150721
  Serious: Yes (Other)
  Sender: FDA-Public Use
  Company Number: TPA2009A03857

PATIENT
  Age: 81 Year
  Sex: Male
  Weight: 71.67 kg

DRUGS (7)
  1. LISINOPRIL. [Concomitant]
     Active Substance: LISINOPRIL
  2. COMBIVENT INHALER (IPRATROPIUM BROMIDE, SALBUTAMOL SULFATE) [Concomitant]
  3. METFORMIN [Concomitant]
     Active Substance: METFORMIN HYDROCHLORIDE
  4. ULORIC [Suspect]
     Active Substance: FEBUXOSTAT
     Indication: GOUT
     Route: 048
     Dates: start: 20090814, end: 20091027
  5. SIMVASTATIN. [Concomitant]
     Active Substance: SIMVASTATIN
  6. XOPENEX INHALER (LEVOSALBUTAMOL) [Concomitant]
  7. ADVAIR INHALER (FLUTICASONE PROPIONATE, SALMETEROL XINAFOATE) [Concomitant]

REACTIONS (1)
  - Leukopenia [None]

NARRATIVE: CASE EVENT DATE: 20091027
